FAERS Safety Report 5801728-9 (Version None)
Quarter: 2008Q3

REPORT INFORMATION
  Report Type: 
  Country: None (occurrence: None)
  Receive Date: 20080707
  Receipt Date: 20080630
  Transmission Date: 20090109
  Serious: Yes (Other)
  Sender: FDA-Public Use
  Company Number: B0527701A

PATIENT
  Age: 74 Year
  Weight: 75 kg

DRUGS (2)
  1. FLIXONASE [Suspect]
     Dosage: 1DROP TWICE PER DAY
     Route: 065
     Dates: start: 20060928
  2. XALATAN [Concomitant]
     Dates: start: 20071010

REACTIONS (2)
  - EPISTAXIS [None]
  - RETINAL VEIN THROMBOSIS [None]
